FAERS Safety Report 18573310 (Version 2)
Quarter: 2021Q1

REPORT INFORMATION
  Report Type: Spontaneous
  Country: DE (occurrence: DE)
  Receive Date: 20201203
  Receipt Date: 20210111
  Transmission Date: 20210419
  Serious: No
  Sender: FDA-Public Use
  Company Number: DE-SA-2020SA343496

PATIENT
  Age: 33 Year
  Sex: Male

DRUGS (1)
  1. AUBAGIO [Suspect]
     Active Substance: TERIFLUNOMIDE
     Dosage: UNK
     Dates: start: 20201105

REACTIONS (9)
  - Alanine aminotransferase increased [Unknown]
  - Condition aggravated [Unknown]
  - Monocyte count decreased [Unknown]
  - Mean cell haemoglobin concentration decreased [Unknown]
  - Blood count abnormal [Unknown]
  - Basophil count increased [Unknown]
  - Neutrophil toxic granulation present [Unknown]
  - Monocyte percentage increased [Unknown]
  - Lymphocyte count decreased [Unknown]

NARRATIVE: CASE EVENT DATE: 202011
